FAERS Safety Report 14906396 (Version 1)
Quarter: 2018Q2

REPORT INFORMATION
  Report Type: Spontaneous
  Country: US (occurrence: US)
  Receive Date: 20180517
  Receipt Date: 20180517
  Transmission Date: 20180711
  Serious: No
  Sender: FDA-Public Use
  Company Number: US-SA-2018SA111867

PATIENT

DRUGS (4)
  1. LANTUS SOLOSTAR [Suspect]
     Active Substance: INSULIN GLARGINE
     Route: 051
  2. TOUJEO [Concomitant]
     Active Substance: INSULIN GLARGINE
  3. SOLOSTAR [Suspect]
     Active Substance: DEVICE
  4. SOLOSTAR [Concomitant]
     Active Substance: DEVICE

REACTIONS (2)
  - Device issue [Unknown]
  - Pain [Unknown]
